FAERS Safety Report 4304257-7 (Version None)
Quarter: 2004Q1

REPORT INFORMATION
  Report Type: 
  Country: None (occurrence: None)
  Receive Date: 20040225
  Receipt Date: 20040213
  Transmission Date: 20041129
  Serious: Yes (Hospitalization)
  Sender: FDA-Public Use
  Company Number: WAES 0402AUS00183

PATIENT
  Age: 50 Year
  Sex: Male

DRUGS (9)
  1. AZATHIOPRINE [Concomitant]
  2. CYCLOSPORINE [Suspect]
     Indication: COMPLICATIONS OF TRANSPLANT SURGERY
     Route: 048
  3. CYCLOSPORINE [Suspect]
     Route: 048
  4. DILTIAZEM HYDROCHLORIDE [Suspect]
     Indication: ESSENTIAL HYPERTENSION
     Dates: end: 20021127
  5. INSULIN, BIPHASIC ISOPHANE [INJECTION] [Concomitant]
  6. IRBESARTAN [Suspect]
     Indication: ALBUMINURIA
     Route: 048
     Dates: start: 20021120, end: 20021127
  7. ZOCOR [Suspect]
     Route: 048
     Dates: start: 20021120, end: 20021127
  8. SULFAMETHOXAZOLE AND TRIMETHOPRIM [Concomitant]
  9. TRAMADOL HYDROCHLORIDE [Concomitant]

REACTIONS (4)
  - BLOOD CREATINE PHOSPHOKINASE INCREASED [None]
  - MUSCULAR WEAKNESS [None]
  - MYOSITIS [None]
  - RHABDOMYOLYSIS [None]
